FAERS Safety Report 20532466 (Version 1)
Quarter: 2022Q1

REPORT INFORMATION
  Report Type: Spontaneous
  Country: RU (occurrence: RU)
  Receive Date: 20220301
  Receipt Date: 20220301
  Transmission Date: 20220423
  Serious: No
  Sender: FDA-Public Use
  Company Number: RU-LUPIN PHARMACEUTICALS INC.-2022-02495

PATIENT
  Age: 21 Year
  Sex: Male

DRUGS (5)
  1. PAROXETINE [Suspect]
     Active Substance: PAROXETINE
     Indication: Depression
     Dosage: 40 MG, QD
     Route: 065
     Dates: start: 201904, end: 202002
  2. PAROXETINE [Suspect]
     Active Substance: PAROXETINE
     Indication: Anxiety
     Dosage: 40 MG, QD
     Route: 065
     Dates: start: 202008
  3. HYDROXYZINE [Concomitant]
     Active Substance: HYDROXYZINE HYDROCHLORIDE
     Indication: Anxiety
     Dosage: 25 MG, QD
     Route: 065
     Dates: start: 201904
  4. PHENAZEPAM [Concomitant]
     Active Substance: PHENAZEPAM
     Indication: Anxiety
     Dosage: 1 MG, QD
     Route: 065
     Dates: start: 20200917
  5. PHENAZEPAM [Concomitant]
     Active Substance: PHENAZEPAM
     Indication: Sleep disorder

REACTIONS (5)
  - Sexual dysfunction [Recovered/Resolved]
  - Dizziness [Recovered/Resolved]
  - Constipation [Recovered/Resolved]
  - Tremor [Recovering/Resolving]
  - Drug ineffective [Unknown]

NARRATIVE: CASE EVENT DATE: 20190101
